FAERS Safety Report 9630685 (Version 1)
Quarter: 2013Q4

REPORT INFORMATION
  Report Type: Spontaneous
  Country: ZA (occurrence: ZA)
  Receive Date: 20131018
  Receipt Date: 20131018
  Transmission Date: 20140711
  Serious: No
  Sender: FDA-Public Use
  Company Number: ZA-JNJFOC-20131007687

PATIENT
  Age: 32 Year
  Sex: Male

DRUGS (3)
  1. REVELLEX [Suspect]
     Indication: COLITIS ULCERATIVE
     Route: 042
     Dates: start: 20130826
  2. REVELLEX [Suspect]
     Indication: COLITIS ULCERATIVE
     Route: 042
     Dates: start: 20130320
  3. NEXIAM [Concomitant]
     Indication: GASTRIC ULCER
     Route: 048

REACTIONS (1)
  - Herpes zoster [Not Recovered/Not Resolved]
